FAERS Safety Report 22663387 (Version 2)
Quarter: 2024Q2

REPORT INFORMATION
  Report Type: Other
  Country: CN (occurrence: None)
  Receive Date: 20230703
  Receipt Date: 20240409
  Transmission Date: 20240716
  Serious: Yes (Other)
  Sender: FDA-Public Use
  Company Number: CN-ROCHE-1855798

PATIENT
  Sex: Female
  Weight: 53 kg

DRUGS (3)
  1. AVASTIN [Suspect]
     Active Substance: BEVACIZUMAB
     Indication: Non-small cell lung cancer
     Route: 041
     Dates: start: 20160920
  2. AVASTIN [Suspect]
     Active Substance: BEVACIZUMAB
     Route: 041
     Dates: start: 20160920
  3. AVASTIN [Suspect]
     Active Substance: BEVACIZUMAB
     Route: 041
     Dates: start: 20190731

REACTIONS (14)
  - Pneumonia [Not Recovered/Not Resolved]
  - Brain oedema [Recovering/Resolving]
  - Enteritis infectious [Unknown]
  - Cough [Unknown]
  - Hypertension [Unknown]
  - Dizziness [Unknown]
  - Speech disorder [Unknown]
  - Nasopharyngitis [Unknown]
  - Diarrhoea [Unknown]
  - General physical health deterioration [Unknown]
  - Oropharyngeal pain [Unknown]
  - Abdominal pain [Unknown]
  - Diarrhoea [Unknown]
  - Pulmonary mass [Not Recovered/Not Resolved]

NARRATIVE: CASE EVENT DATE: 20230420
